FAERS Safety Report 5072754-5 (Version None)
Quarter: 2006Q3

REPORT INFORMATION
  Report Type: 
  Country: None (occurrence: None)
  Receive Date: 20060807
  Receipt Date: 20060802
  Transmission Date: 20061208
  Serious: Yes (Other)
  Sender: FDA-Public Use
  Company Number: 2006UW15508

PATIENT
  Age: 15 Year
  Sex: Male
  Weight: 90.7 kg

DRUGS (8)
  1. SEROQUEL [Suspect]
     Indication: ASPERGER'S DISORDER
     Route: 048
  2. SEROQUEL [Suspect]
     Indication: MOOD ALTERED
     Route: 048
  3. SEROQUEL [Suspect]
     Route: 048
     Dates: start: 20050101
  4. SEROQUEL [Suspect]
     Route: 048
     Dates: start: 20050101
  5. SEROQUEL [Suspect]
     Route: 048
  6. SEROQUEL [Suspect]
     Route: 048
  7. CONCERTA [Concomitant]
  8. TRILEPTAL [Concomitant]

REACTIONS (1)
  - EPISTAXIS [None]
